FAERS Safety Report 23333329 (Version 1)
Quarter: 2023Q4

REPORT INFORMATION
  Report Type: Spontaneous
  Country: US (occurrence: US)
  Receive Date: 20231222
  Receipt Date: 20231222
  Transmission Date: 20240110
  Serious: No
  Sender: FDA-Public Use
  Company Number: US-CTI BIOPHARMA-2023US04158

PATIENT

DRUGS (6)
  1. VONJO [Suspect]
     Active Substance: PACRITINIB
     Indication: Myelofibrosis
     Dosage: 200 MG, BID
     Route: 048
  2. ALLOPURINOL [Concomitant]
     Active Substance: ALLOPURINOL
  3. GAMUNEX-C [Concomitant]
     Active Substance: HUMAN IMMUNOGLOBULIN G
  4. REPAGLINIDE [Concomitant]
     Active Substance: REPAGLINIDE
  5. DEFLAZACORT [Concomitant]
     Active Substance: DEFLAZACORT
  6. MOMELOTINIB(ojjaara) [Concomitant]

REACTIONS (1)
  - Drug intolerance [Unknown]
